FAERS Safety Report 7590110-2 (Version None)
Quarter: 2011Q3

REPORT INFORMATION
  Report Type: 
  Country: None (occurrence: None)
  Receive Date: 20110705
  Receipt Date: 20110624
  Transmission Date: 20111222
  Serious: Yes (Other)
  Sender: FDA-Public Use
  Company Number: B0729454A

PATIENT
  Age: 74 Year
  Sex: Female
  Weight: 43 kg

DRUGS (2)
  1. LAPATINIB [Suspect]
     Route: 048
     Dates: start: 20110411, end: 20110614
  2. XELODA [Concomitant]
     Route: 048
     Dates: start: 20110411, end: 20110614

REACTIONS (7)
  - ASPHYXIA [None]
  - DECREASED APPETITE [None]
  - NAUSEA [None]
  - FATIGUE [None]
  - INSOMNIA [None]
  - SPUTUM ABNORMAL [None]
  - COUGH [None]
